FAERS Safety Report 11220033 (Version 3)
Quarter: 2016Q3

REPORT INFORMATION
  Report Type: Spontaneous
  Country: US (occurrence: US)
  Receive Date: 20150625
  Receipt Date: 20160714
  Transmission Date: 20161109
  Serious: No
  Sender: FDA-Public Use
  Company Number: US-TEVA-573230ACC

PATIENT
  Age: 26 Year
  Sex: Female

DRUGS (2)
  1. ONDANSETRON 4MG [Concomitant]
     Dosage: 12 MILLIGRAM DAILY;
     Dates: start: 20150617
  2. PARAGARD T 380A [Suspect]
     Active Substance: COPPER
     Indication: CONTRACEPTION
     Route: 015
     Dates: start: 2015, end: 20150316

REACTIONS (4)
  - Pregnancy [Unknown]
  - Complication associated with device [Not Recovered/Not Resolved]
  - Live birth [Unknown]
  - Device breakage [Unknown]

NARRATIVE: CASE EVENT DATE: 20150316
